FAERS Safety Report 5358374-3 (Version None)
Quarter: 2007Q2

REPORT INFORMATION
  Report Type: 
  Country: None (occurrence: None)
  Receive Date: 20070530
  Receipt Date: 20070221
  Transmission Date: 20071010
  Serious: Yes (Hospitalization, Other)
  Sender: FDA-Public Use
  Company Number: US200512002326

PATIENT
  Age: 20 Year
  Sex: Male
  Weight: 83.9 kg

DRUGS (2)
  1. ZYPREXA [Suspect]
     Indication: DEPRESSION
     Dosage: 2.5 MG, DAILY (1/D)
     Dates: start: 20050701, end: 20050926
  2. LEXAPRO [Concomitant]

REACTIONS (7)
  - BLOOD GLUCOSE INCREASED [None]
  - DIABETES MELLITUS [None]
  - DIABETIC COMA [None]
  - DIABETIC KETOACIDOSIS [None]
  - PANCREATITIS [None]
  - POLLAKIURIA [None]
  - THIRST [None]
